FAERS Safety Report 4402007-7 (Version None)
Quarter: 2004Q3

REPORT INFORMATION
  Report Type: 
  Country: None (occurrence: None)
  Receive Date: 20040719
  Receipt Date: 20040719
  Transmission Date: 20050211
  Serious: No
  Sender: FDA-Public Use
  Company Number: None

PATIENT
  Age: 49 Year
  Sex: Female
  Weight: 57.6068 kg

DRUGS (5)
  1. TOPAMAX [Suspect]
     Indication: SCHIZOAFFECTIVE DISORDER
     Dosage: 50 MG QAM ORAL, 50 MG Q1800 ORAL
     Route: 048
     Dates: start: 20031001, end: 20031006
  2. TOPAMAX [Suspect]
     Indication: SCHIZOAFFECTIVE DISORDER
     Dosage: 50 MG QAM ORAL, 50 MG Q1800 ORAL
     Route: 048
     Dates: start: 20031014, end: 20031016
  3. DIAZEPAM [Concomitant]
  4. IBUPROFEN [Concomitant]
  5. LITHIUM [Concomitant]

REACTIONS (2)
  - BLISTER [None]
  - RASH [None]
